FAERS Safety Report 23917946 (Version 1)
Quarter: 2024Q2

REPORT INFORMATION
  Report Type: Spontaneous
  Country: JP (occurrence: JP)
  Receive Date: 20240530
  Receipt Date: 20240530
  Transmission Date: 20240716
  Serious: Yes (Hospitalization, Other)
  Sender: FDA-Public Use
  Company Number: JP-MSD-M2024-08270

PATIENT
  Age: 73 Year
  Sex: Female

DRUGS (2)
  1. KEYTRUDA [Suspect]
     Active Substance: PEMBROLIZUMAB
     Indication: Renal cell carcinoma
     Dosage: 200 MILLIGRAM, Q3W
     Route: 041
     Dates: start: 202312, end: 202402
  2. AXITINIB [Suspect]
     Active Substance: AXITINIB
     Indication: Renal cell carcinoma
     Dosage: UNK
     Route: 048
     Dates: start: 202312, end: 202402

REACTIONS (2)
  - Incarcerated hernia [Recovering/Resolving]
  - Immune-mediated enterocolitis [Recovered/Resolved]

NARRATIVE: CASE EVENT DATE: 20240201
